FAERS Safety Report 9391709 (Version 2)
Quarter: 2013Q3

REPORT INFORMATION
  Report Type: Spontaneous
  Country: DE (occurrence: DE)
  Receive Date: 20130709
  Receipt Date: 20130930
  Transmission Date: 20140515
  Serious: Yes (Hospitalization, Disabling, Congenital Anomaly)
  Sender: FDA-Public Use
  Company Number: GXKR2013DE002329

PATIENT
  Sex: 0

DRUGS (5)
  1. CITALOPRAM [Suspect]
     Dosage: MATERNAL DOSE: 1 DF, QD (GESTATIONAL WEEK 1-4)
     Route: 064
  2. KATADOLON [Suspect]
     Indication: RHEUMATIC DISORDER
     Dosage: MATERNAL DOSE: 1-2X/DAY (GESTATIONAL WEEK 1-4)
     Route: 064
  3. TILIDIN [Concomitant]
     Dosage: MATERNAL DOSE: 1 DF/WEEK (GESTATIONAL WEEK 1-4)
     Route: 064
  4. PANTOPRAZOL [Concomitant]
     Dosage: MATERNAL DOSE: 20 MG, QW2 (GESTATIONAL WEEK 4-32)
     Route: 064
  5. DIAZEPAM [Concomitant]
     Dosage: MATERNAL DOSE: 20 MG, QW3 (GESTATIONAL WEEK 30-32)
     Route: 064

REACTIONS (4)
  - Congenital hydrocephalus [Not Recovered/Not Resolved]
  - Limb reduction defect [Not Recovered/Not Resolved]
  - Pulmonary hypertension [Not Recovered/Not Resolved]
  - Foetal exposure timing unspecified [Not Recovered/Not Resolved]
